FAERS Safety Report 13450614 (Version 2)
Quarter: 2017Q4

REPORT INFORMATION
  Report Type: Spontaneous
  Country: US (occurrence: US)
  Receive Date: 20170418
  Receipt Date: 20171127
  Transmission Date: 20180320
  Serious: Yes (Other)
  Sender: FDA-Public Use
  Company Number: US-TEVA-743204USA

PATIENT
  Age: 17 Year
  Sex: Female

DRUGS (2)
  1. BUPROPION EXTENDED RELEASE [Suspect]
     Active Substance: BUPROPION
     Indication: DEPRESSION
     Dosage: 150 MILLIGRAM DAILY;
     Dates: start: 20170129, end: 20170206
  2. VYVANSE [Concomitant]
     Active Substance: LISDEXAMFETAMINE DIMESYLATE
     Indication: ATTENTION DEFICIT/HYPERACTIVITY DISORDER
     Dosage: 40 MILLIGRAM DAILY;

REACTIONS (1)
  - Dystonia [Recovered/Resolved]

NARRATIVE: CASE EVENT DATE: 20170206
